FAERS Safety Report 9234597 (Version 2)
Quarter: 2013Q2

REPORT INFORMATION
  Report Type: Spontaneous
  Country: US (occurrence: None)
  Receive Date: 20121031
  Receipt Date: 20130107
  Transmission Date: 20140414
  Serious: Yes (Other)
  Sender: FDA-Public Use
  Company Number: PHEH2012US013217

PATIENT
  Age: 60 Year
  Sex: Female
  Weight: 74.8 kg

DRUGS (18)
  1. GILENYA [Suspect]
     Indication: MULTIPLE SCLEROSIS
     Route: 048
     Dates: start: 20111120, end: 20120620
  2. PENNSADD (DICLOFENAC SODIUM) [Concomitant]
  3. FOLIC ACID (FOLIC ACID) [Concomitant]
  4. MULTIVITAMINS W/ FLUORIDE (SODIUM FLUORIDE, VITAMINS NOS) [Concomitant]
  5. SENNA (SENNA ALEXANDRINA) [Concomitant]
  6. VESICARE (SOLIFENACIN) [Concomitant]
  7. MIRAPEX (PRAMIPEXOLE DIHYDROCHLORIDE) [Concomitant]
  8. COLACE [Concomitant]
  9. ZESTAK (ADRENAL CORTICAL EXTRACT, HEPARIN, SALICYIC ACID) [Concomitant]
  10. VITAMIN D (ERGOCALCIFEROL) [Concomitant]
  11. MITOXANTRONE HYDROCHLORIDE (MITOXANE HYDROCHLORIDE) [Concomitant]
  12. LISINOPRIL (LISINOPRIL) [Concomitant]
  13. IBUPROFEN (IBUPROFEN) [Concomitant]
  14. NEXIUM (ESOMEPRAZOLE MAGNESIUM) [Concomitant]
  15. TRAMADOL HYDROCHLORIDE (TRAMADOL HYDROCHLORIDE) [Concomitant]
  16. BUSPIRONE HYDROCHLORIDE (BUSPIRONE HYDROCHLORIDE) [Concomitant]
  17. ACETAMINOPHEN (PARACETAMOL) [Concomitant]
  18. GABAPENTIN (GABAPENTIN) [Concomitant]

REACTIONS (5)
  - Herpes zoster [None]
  - Rash [None]
  - Scab [None]
  - Pain [None]
  - Skin exfoliation [None]
